FAERS Safety Report 6828783-1 (Version None)
Quarter: 2010Q3

REPORT INFORMATION
  Report Type: 
  Country: None (occurrence: None)
  Receive Date: 20100709
  Receipt Date: 20070216
  Transmission Date: 20110219
  Serious: No
  Sender: FDA-Public Use
  Company Number: US-PFIZER INC-2007014219

PATIENT
  Sex: Female
  Weight: 77.56 kg

DRUGS (9)
  1. CHANTIX [Suspect]
     Indication: SMOKING CESSATION THERAPY
     Dates: start: 20070201, end: 20070201
  2. ADVAIR DISKUS 100/50 [Concomitant]
  3. SPIRIVA [Concomitant]
  4. ALBUTEROL [Concomitant]
  5. MONTELUKAST [Concomitant]
  6. PEPCID [Concomitant]
  7. DETROL [Concomitant]
  8. BACLOFEN [Concomitant]
  9. PREMPRO [Concomitant]

REACTIONS (1)
  - DYSPNOEA [None]
